FAERS Safety Report 6250016-8 (Version None)
Quarter: 2009Q2

REPORT INFORMATION
  Report Type: 
  Country: None (occurrence: None)
  Receive Date: 20090629
  Receipt Date: 20090618
  Transmission Date: 20091009
  Serious: Yes (Other)
  Sender: FDA-Public Use
  Company Number: PHHY2009GB25117

PATIENT

DRUGS (1)
  1. TRILEPTAL [Suspect]
     Dosage: 600 MG, BID

REACTIONS (4)
  - DIZZINESS [None]
  - GASTRIC BYPASS [None]
  - POST PROCEDURAL COMPLICATION [None]
  - RENAL IMPAIRMENT [None]
